FAERS Safety Report 11661395 (Version 1)
Quarter: 2015Q4

REPORT INFORMATION
  Report Type: Spontaneous
  Country: US (occurrence: US)
  Receive Date: 20151026
  Receipt Date: 20151026
  Transmission Date: 20160304
  Serious: Yes (Life-Threatening, Hospitalization, Disabling, Other)
  Sender: FDA-Public Use
  Company Number: US-BAYER-2015-446490

PATIENT
  Age: 31 Year
  Sex: Female

DRUGS (9)
  1. PHENERGAN [Suspect]
     Active Substance: PROMETHAZINE HYDROCHLORIDE
     Dosage: UNK
  2. CIPRO [Suspect]
     Active Substance: CIPROFLOXACIN HYDROCHLORIDE
     Dosage: UNK
  3. LEVAQUIN [Suspect]
     Active Substance: LEVOFLOXACIN
  4. PREDNISONE. [Concomitant]
     Active Substance: PREDNISONE
     Dosage: 40 MG, UNK
  5. ITRACONAZOLE. [Concomitant]
     Active Substance: ITRACONAZOLE
  6. COLISTIN [Suspect]
     Active Substance: COLISTIN
     Dosage: UNK
  7. AZTREONAM. [Suspect]
     Active Substance: AZTREONAM
     Dosage: UNK
  8. PREDNISONE. [Concomitant]
     Active Substance: PREDNISONE
     Dosage: 60 MG, UNK
  9. AMBIEN [Suspect]
     Active Substance: ZOLPIDEM TARTRATE
     Dosage: UNK

REACTIONS (22)
  - Insomnia [None]
  - Brain injury [None]
  - Condition aggravated [None]
  - Suicidal ideation [None]
  - Hallucination [None]
  - Bipolar I disorder [None]
  - Abasia [None]
  - Tremor [None]
  - Nausea [None]
  - Vestibular disorder [None]
  - Speech disorder [None]
  - Disturbance in attention [None]
  - Dizziness [None]
  - Feeling abnormal [None]
  - Psychotic disorder [None]
  - Coordination abnormal [None]
  - Exposure during pregnancy [None]
  - Vertigo [None]
  - Depression [None]
  - Haemoptysis [None]
  - Psychotic disorder [None]
  - Anxiety [None]

NARRATIVE: CASE EVENT DATE: 201012
